FAERS Safety Report 11589109 (Version 1)
Quarter: 2015Q4

REPORT INFORMATION
  Report Type: Spontaneous
  Country: US (occurrence: US)
  Receive Date: 20151002
  Receipt Date: 20151002
  Transmission Date: 20160304
  Serious: Yes (Other)
  Sender: FDA-Public Use
  Company Number: US-PFIZER INC-2015314588

PATIENT
  Age: 70 Year
  Sex: Female
  Weight: 59 kg

DRUGS (3)
  1. FULVESTRANT [Suspect]
     Active Substance: FULVESTRANT
     Dosage: ONCE IN EVERY 4 WEEKS
     Route: 058
     Dates: start: 20150211, end: 20150603
  2. XGEVA [Suspect]
     Active Substance: DENOSUMAB
     Dosage: UNK
     Dates: start: 20150204, end: 20150408
  3. DOXORUBICIN HCL [Suspect]
     Active Substance: DOXORUBICIN HYDROCHLORIDE
     Dosage: UNK
     Dates: start: 2015

REACTIONS (4)
  - Osteonecrosis of jaw [Unknown]
  - Tumour marker increased [Unknown]
  - Tooth infection [Unknown]
  - Body height decreased [Unknown]
